FAERS Safety Report 11921505 (Version 1)
Quarter: 2016Q1

REPORT INFORMATION
  Report Type: Spontaneous
  Country: FR (occurrence: FR)
  Receive Date: 20160115
  Receipt Date: 20160115
  Transmission Date: 20160526
  Serious: Yes (Death)
  Sender: FDA-Public Use
  Company Number: PHHY2016FR004254

PATIENT
  Age: 2 Year
  Sex: Female

DRUGS (4)
  1. EPITOMAX [Concomitant]
     Active Substance: TOPIRAMATE
     Indication: EPILEPSY
     Dosage: UNK
     Route: 065
     Dates: start: 20151027
  2. TEGRETOL [Suspect]
     Active Substance: CARBAMAZEPINE
     Indication: EPILEPSY
     Dosage: UNK
     Route: 065
     Dates: start: 20151027
  3. SABRIL [Concomitant]
     Active Substance: VIGABATRIN
     Indication: EPILEPSY
     Dosage: UNK
     Route: 065
     Dates: start: 20151027
  4. VOTUBIA [Suspect]
     Active Substance: EVEROLIMUS
     Dosage: UNK
     Route: 065
     Dates: start: 20151027

REACTIONS (1)
  - Sudden unexplained death in epilepsy [Fatal]

NARRATIVE: CASE EVENT DATE: 20160112
